FAERS Safety Report 14869535 (Version 2)
Quarter: 2018Q4

REPORT INFORMATION
  Report Type: Report from Study
  Country: US (occurrence: US)
  Receive Date: 20180509
  Receipt Date: 20181008
  Transmission Date: 20190204
  Serious: Yes (Other)
  Sender: FDA-Public Use
  Company Number: PHEH2018US017141

PATIENT
  Sex: Female

DRUGS (1)
  1. GILENYA [Suspect]
     Active Substance: FINGOLIMOD HYDROCHLORIDE
     Indication: MULTIPLE SCLEROSIS
     Dosage: 0.5 MG, QD (ABOUT 13 MONTHS)
     Route: 048
     Dates: start: 20170406, end: 20180515

REACTIONS (9)
  - Coordination abnormal [Unknown]
  - Lymphocyte count decreased [Recovering/Resolving]
  - Ataxia [Unknown]
  - Hemiparesis [Unknown]
  - Bladder disorder [Unknown]
  - Central nervous system lesion [Unknown]
  - White blood cell count decreased [Recovering/Resolving]
  - Multiple sclerosis relapse [Recovering/Resolving]
  - Neck pain [Unknown]
